FAERS Safety Report 8818318 (Version 3)
Quarter: 2012Q4

REPORT INFORMATION
  Report Type: 
  Country: AT (occurrence: AT)
  Receive Date: 20121001
  Receipt Date: 20121010
  Transmission Date: 20130627
  Serious: Yes (Hospitalization)
  Sender: FDA-Public Use
  Company Number: AT-ROCHE-1139152

PATIENT
  Age: 0 Year
  Sex: Male

DRUGS (1)
  1. ZELBORAF [Suspect]
     Indication: MALIGNANT MELANOMA
     Dosage: 2x4
     Route: 065
     Dates: start: 20120816, end: 20120823

REACTIONS (2)
  - Diabetic ulcer [Unknown]
  - Leukopenia [Unknown]
